FAERS Safety Report 9023442 (Version 1)
Quarter: 2013Q1

REPORT INFORMATION
  Report Type: Spontaneous
  Country: ES (occurrence: ES)
  Receive Date: 20130121
  Receipt Date: 20130121
  Transmission Date: 20140127
  Serious: Yes (Other)
  Sender: FDA-Public Use
  Company Number: ES-VERTEX PHARMACEUTICALS INC.-2013-000873

PATIENT
  Age: 63 Year
  Sex: Female

DRUGS (3)
  1. INCIVO [Suspect]
     Indication: HEPATITIS C
     Dosage: DOSAGE FORM: TABLET
     Route: 048
     Dates: start: 20120918, end: 20121018
  2. PEGASYS [Concomitant]
     Indication: HEPATITIS C
     Dosage: 18 ?G, UNK
     Route: 058
     Dates: start: 20120918
  3. RIBAVIRIN [Concomitant]
     Indication: HEPATITIS C
     Dosage: 1000 MG, QD
     Route: 048
     Dates: start: 20120918

REACTIONS (2)
  - Anaemia [Recovered/Resolved]
  - Rash pruritic [Recovered/Resolved]
